FAERS Safety Report 7636339-6 (Version None)
Quarter: 2011Q3

REPORT INFORMATION
  Report Type: 
  Country: None (occurrence: None)
  Receive Date: 20110726
  Receipt Date: 20110628
  Transmission Date: 20111222
  Serious: Yes (Other)
  Sender: FDA-Public Use
  Company Number: US-GLAXOSMITHKLINE-A0933474A

PATIENT
  Age: 44 Year
  Sex: Male

DRUGS (3)
  1. VALTREX [Concomitant]
     Indication: HERPES VIRUS INFECTION
     Dosage: 500MG PER DAY
     Route: 048
     Dates: start: 20100601, end: 20110601
  2. ACYCLOVIR [Suspect]
     Indication: HERPES SIMPLEX
     Dosage: 400MG TWICE PER DAY
     Route: 048
     Dates: start: 20110601
  3. DEPAKOTE [Concomitant]

REACTIONS (5)
  - EUPHORIC MOOD [None]
  - ENERGY INCREASED [None]
  - PSYCHOTIC DISORDER [None]
  - INSOMNIA [None]
  - MANIA [None]
